FAERS Safety Report 10884697 (Version 2)
Quarter: 2015Q2

REPORT INFORMATION
  Report Type: Spontaneous
  Country: US (occurrence: US)
  Receive Date: 20150304
  Receipt Date: 20150406
  Transmission Date: 20150821
  Serious: Yes (Hospitalization)
  Sender: FDA-Public Use
  Company Number: US-009507513-1503USA000229

PATIENT
  Age: 52 Year
  Sex: Female

DRUGS (3)
  1. HYDROCORTONE [Suspect]
     Active Substance: HYDROCORTISONE
     Indication: SECONDARY ADRENOCORTICAL INSUFFICIENCY
     Dosage: 10 MG TWICE DAILY
     Route: 048
  2. LEVOTHYROXINE SODIUM. [Concomitant]
     Active Substance: LEVOTHYROXINE SODIUM
     Dosage: UNK
  3. HYDROCORTONE [Suspect]
     Active Substance: HYDROCORTISONE
     Dosage: 20 MG IN THE MORNING AND 10 MG IN THE EVENING

REACTIONS (2)
  - Vomiting [Recovering/Resolving]
  - Hypoglycaemia [Recovering/Resolving]
